FAERS Safety Report 8066537-1 (Version None)
Quarter: 2012Q1

REPORT INFORMATION
  Report Type: 
  Country: None (occurrence: None)
  Receive Date: 20120124
  Receipt Date: 20120116
  Transmission Date: 20120608
  Serious: Yes (Hospitalization, Other)
  Sender: FDA-Public Use
  Company Number: PHFR2011GB04875

PATIENT
  Sex: Male
  Weight: 73 kg

DRUGS (2)
  1. CLOZARIL [Suspect]
     Indication: SCHIZOPHRENIA
     Dosage: 225 MG
     Route: 048
     Dates: start: 20110708
  2. AMISULPRIDE [Suspect]
     Indication: SCHIZOPHRENIA
     Dosage: 300 MG, DAILY
     Route: 048
     Dates: start: 20110601

REACTIONS (3)
  - MALAISE [None]
  - TUBERCULOSIS [None]
  - EOSINOPHIL COUNT INCREASED [None]
